FAERS Safety Report 8021318-X (Version None)
Quarter: 2012Q1

REPORT INFORMATION
  Report Type: 
  Country: None (occurrence: None)
  Receive Date: 20120104
  Receipt Date: 20111223
  Transmission Date: 20120608
  Serious: Yes (Death, Hospitalization)
  Sender: FDA-Public Use
  Company Number: US-SANOFI-AVENTIS-2011SA085139

PATIENT
  Age: 68 Year
  Sex: Male
  Weight: 55.51 kg

DRUGS (12)
  1. BLINDED THERAPY [Suspect]
     Dates: start: 20110715, end: 20111214
  2. DIPHENHYDRAMINE HCL [Concomitant]
     Dates: start: 20110715
  3. LEUCOVORIN CALCIUM [Suspect]
     Dates: start: 20110715
  4. ACETAMINOPHEN [Concomitant]
     Dates: start: 20110804
  5. OXALIPLATIN [Suspect]
     Route: 041
     Dates: start: 20110715, end: 20110715
  6. ASPIRIN [Concomitant]
     Dates: start: 19920101
  7. ALLOPURINOL [Concomitant]
     Dates: start: 20000101
  8. DEXLANSOPRAZOLE [Concomitant]
     Dates: start: 20090101
  9. GRANISETRON [Concomitant]
     Dates: start: 20110715
  10. DIPHENOXYLATE [Concomitant]
     Dates: start: 20110722
  11. DEXAMETHASONE [Concomitant]
     Dates: start: 20110715
  12. FLUOROURACIL [Suspect]
     Dates: start: 20110715

REACTIONS (2)
  - PYREXIA [None]
  - DEATH [None]
